FAERS Safety Report 9049771 (Version 1)
Quarter: 2013Q1

REPORT INFORMATION
  Report Type: Spontaneous
  Country: US (occurrence: US)
  Receive Date: 20130205
  Receipt Date: 20130205
  Transmission Date: 20140127
  Serious: Yes (Life-Threatening, Hospitalization)
  Sender: FDA-Public Use
  Company Number: US-BAYER-2013-014404

PATIENT
  Age: 22 Year
  Sex: Female
  Weight: 76.87 kg

DRUGS (13)
  1. YAZ [Suspect]
  2. HYDROCODONE BITARTRATE W/IBUPROFEN [Concomitant]
  3. ZOTEX [Concomitant]
  4. GABAPENTIN [Concomitant]
  5. PROCHLORPERAZINE [Concomitant]
  6. KETOROLAC [Concomitant]
  7. TEMAZEPAM [Concomitant]
  8. HYDROMORPHONE [Concomitant]
  9. ACIPHEX [Concomitant]
     Dosage: UNK
     Dates: end: 20080824
  10. VICODIN [Concomitant]
     Dosage: UNK
     Dates: end: 20080825
  11. PEPCID [CALCIUM CARBONATE,FAMOTIDINE,MAGNESIUM HYDROXIDE] [Concomitant]
  12. PERCOCET [OXYCODONE HYDROCHLORIDE,OXYCODONE TEREPHTHALATE,PARACETA [Concomitant]
  13. NEXIUM [Concomitant]

REACTIONS (1)
  - Pulmonary embolism [None]
